FAERS Safety Report 5306895-1 (Version None)
Quarter: 2007Q2

REPORT INFORMATION
  Report Type: 
  Country: None (occurrence: None)
  Receive Date: 20070425
  Receipt Date: 20070417
  Transmission Date: 20071010
  Serious: Yes (Hospitalization)
  Sender: FDA-Public Use
  Company Number: PHEH2007US05658

PATIENT
  Sex: Female

DRUGS (1)
  1. ZELNORM [Suspect]
     Indication: IRRITABLE BOWEL SYNDROME
     Dosage: 6 MG 2-3 TIMES A DAY
     Dates: start: 20040101, end: 20051026

REACTIONS (7)
  - ABDOMINAL PAIN [None]
  - BLOOD CREATININE DECREASED [None]
  - BLOOD UREA [None]
  - DIZZINESS [None]
  - DYSSTASIA [None]
  - HYPOKALAEMIA [None]
  - MUSCLE SPASMS [None]
